FAERS Safety Report 5891494-3 (Version None)
Quarter: 2008Q3

REPORT INFORMATION
  Report Type: 
  Country: None (occurrence: None)
  Receive Date: 20080922
  Receipt Date: 20080915
  Transmission Date: 20090109
  Serious: Yes (Other)
  Sender: FDA-Public Use
  Company Number: US-ABBOTT-08P-163-0476357-00

PATIENT
  Sex: Female
  Weight: 51.302 kg

DRUGS (2)
  1. HUMIRA [Suspect]
     Indication: CROHN'S DISEASE
     Route: 058
     Dates: start: 20071101
  2. AZATHIOPRINE [Concomitant]
     Indication: CROHN'S DISEASE

REACTIONS (8)
  - DIARRHOEA [None]
  - HAEMORRHAGE [None]
  - HYPERTENSION [None]
  - INCISION SITE COMPLICATION [None]
  - INCISION SITE ERYTHEMA [None]
  - INCISION SITE PAIN [None]
  - PROLONGED LABOUR [None]
  - WEIGHT DECREASED [None]
